FAERS Safety Report 5562648-0 (Version None)
Quarter: 2007Q4

REPORT INFORMATION
  Report Type: 
  Country: None (occurrence: None)
  Receive Date: 20071217
  Receipt Date: 20071207
  Transmission Date: 20080405
  Serious: Yes (Hospitalization)
  Sender: FDA-Public Use
  Company Number: SE-BRISTOL-MYERS SQUIBB COMPANY-14014146

PATIENT
  Age: 54 Year
  Sex: Female

DRUGS (4)
  1. HOLOXAN [Suspect]
     Indication: B-CELL LYMPHOMA RECURRENT
     Dates: end: 20071206
  2. CARBOPLATIN [Suspect]
     Indication: B-CELL LYMPHOMA RECURRENT
     Dates: end: 20071206
  3. ETOPOSIDE [Suspect]
     Indication: B-CELL LYMPHOMA RECURRENT
     Dates: end: 20071206
  4. UROMITEXAN [Suspect]
     Indication: B-CELL LYMPHOMA RECURRENT
     Dates: end: 20071206

REACTIONS (2)
  - ENCEPHALOPATHY [None]
  - METABOLIC ENCEPHALOPATHY [None]
